FAERS Safety Report 15206212 (Version 1)
Quarter: 2018Q3

REPORT INFORMATION
  Report Type: Spontaneous
  Country: US (occurrence: US)
  Receive Date: 20180727
  Receipt Date: 20180727
  Transmission Date: 20181010
  Serious: Yes (Hospitalization, Other)
  Sender: FDA-Public Use
  Company Number: US-BEH-2018093113

PATIENT
  Age: 54 Year
  Sex: Female
  Weight: 87.75 kg

DRUGS (34)
  1. ZOLOFT [Concomitant]
     Active Substance: SERTRALINE HYDROCHLORIDE
  2. FOLIC ACID. [Concomitant]
     Active Substance: FOLIC ACID
  3. CEFDINIR. [Concomitant]
     Active Substance: CEFDINIR
  4. CLINDAMYCIN. [Concomitant]
     Active Substance: CLINDAMYCIN
  5. VENOFER [Concomitant]
     Active Substance: IRON SUCROSE
  6. HIZENTRA [Suspect]
     Active Substance: HUMAN IMMUNOGLOBULIN G
     Dosage: UNK
     Route: 058
  7. PLAQUENIL                          /00072602/ [Concomitant]
     Active Substance: HYDROXYCHLOROQUINE DIPHOSPHATE
  8. ABILIFY [Concomitant]
     Active Substance: ARIPIPRAZOLE
  9. EPINEPHRINE. [Concomitant]
     Active Substance: EPINEPHRINE
  10. AUGMENTIN [Concomitant]
     Active Substance: AMOXICILLIN\CLAVULANATE POTASSIUM
  11. LINEZOLID. [Concomitant]
     Active Substance: LINEZOLID
  12. HIZENTRA [Suspect]
     Active Substance: HUMAN IMMUNOGLOBULIN G
     Indication: HYPOGAMMAGLOBULINAEMIA
     Dosage: UNK
     Route: 058
  13. CEFTRIAXONE. [Concomitant]
     Active Substance: CEFTRIAXONE
  14. INVANZ [Concomitant]
     Active Substance: ERTAPENEM SODIUM
  15. PREDNISONE. [Concomitant]
     Active Substance: PREDNISONE
  16. AUGMENTIN [Concomitant]
     Active Substance: AMOXICILLIN\CLAVULANATE POTASSIUM
  17. QUINACRINE [Concomitant]
     Active Substance: QUINACRINE
  18. KLOR?CON [Concomitant]
     Active Substance: POTASSIUM CHLORIDE
  19. CYANOCOBALAMIN. [Concomitant]
     Active Substance: CYANOCOBALAMIN
  20. TOPAMAX [Concomitant]
     Active Substance: TOPIRAMATE
  21. COUMADIN [Concomitant]
     Active Substance: WARFARIN SODIUM
  22. ZANAFLEX [Concomitant]
     Active Substance: TIZANIDINE HYDROCHLORIDE
  23. IMURAN [Concomitant]
     Active Substance: AZATHIOPRINE
  24. TIROSINT [Concomitant]
     Active Substance: LEVOTHYROXINE SODIUM
  25. CEFAZOLIN [Concomitant]
     Active Substance: CEFAZOLIN
  26. BYSTOLIC [Concomitant]
     Active Substance: NEBIVOLOL HYDROCHLORIDE
  27. HIZENTRA [Suspect]
     Active Substance: HUMAN IMMUNOGLOBULIN G
     Dosage: 19 G, QW
     Route: 058
     Dates: start: 20110310
  28. NEXIUM [Concomitant]
     Active Substance: ESOMEPRAZOLE MAGNESIUM
  29. ACETAMINOPHEN. [Concomitant]
     Active Substance: ACETAMINOPHEN
  30. DOXYCYCLINE. [Concomitant]
     Active Substance: DOXYCYCLINE
  31. NORVASC [Concomitant]
     Active Substance: AMLODIPINE BESYLATE
  32. KLONOPIN [Concomitant]
     Active Substance: CLONAZEPAM
  33. DIPHENHYDRAMINE. [Concomitant]
     Active Substance: DIPHENHYDRAMINE
  34. XYZAL [Concomitant]
     Active Substance: LEVOCETIRIZINE DIHYDROCHLORIDE

REACTIONS (1)
  - Neck surgery [Unknown]

NARRATIVE: CASE EVENT DATE: 20180703
